FAERS Safety Report 11929383 (Version 1)
Quarter: 2016Q1

REPORT INFORMATION
  Report Type: Spontaneous
  Country: US (occurrence: None)
  Receive Date: 20160119
  Receipt Date: 20160119
  Transmission Date: 20160526
  Serious: Yes (Death)
  Sender: FDA-Public Use
  Company Number: None

PATIENT
  Age: 55 Year
  Sex: Male

DRUGS (1)
  1. STIVARGA [Suspect]
     Active Substance: REGORAFENIB
     Dosage: 4 PILLS ONCE DAILY TAKEN BY MOUTH
     Route: 048

REACTIONS (3)
  - Pain [None]
  - Gastric perforation [None]
  - Sepsis [None]

NARRATIVE: CASE EVENT DATE: 20151214
